FAERS Safety Report 5079264-X (Version None)
Quarter: 2006Q3

REPORT INFORMATION
  Report Type: 
  Country: None (occurrence: None)
  Receive Date: 20060814
  Receipt Date: 20060809
  Transmission Date: 20061208
  Serious: Yes (Other)
  Sender: FDA-Public Use
  Company Number: US-GLAXOSMITHKLINE-A0615982A

PATIENT
  Age: 77 Year
  Sex: Female

DRUGS (8)
  1. CITRUCEL CAPLETS [Suspect]
     Route: 048
     Dates: end: 20060101
  2. SYNTHROID [Concomitant]
  3. ULTRAM [Concomitant]
  4. FLEXERIL [Concomitant]
  5. ELAVIL [Concomitant]
  6. ULTRA MEGA VITAMINS [Concomitant]
  7. UNSPECIFIED MEDICATION [Concomitant]
  8. BIOTIN [Concomitant]

REACTIONS (7)
  - APHASIA [None]
  - CHOKING [None]
  - FEAR [None]
  - INTENTIONAL DRUG MISUSE [None]
  - MEDICATION RESIDUE [None]
  - REGURGITATION OF FOOD [None]
  - THROAT IRRITATION [None]
